FAERS Safety Report 13098264 (Version 1)
Quarter: 2017Q1

REPORT INFORMATION
  Report Type: Spontaneous
  Country: US (occurrence: US)
  Receive Date: 20170109
  Receipt Date: 20170109
  Transmission Date: 20170428
  Serious: Yes (Hospitalization, Other)
  Sender: FDA-Public Use
  Company Number: US-HORIZON-RAV-0286-2016

PATIENT
  Age: 17 Year
  Sex: Male

DRUGS (1)
  1. RAVICTI [Suspect]
     Active Substance: GLYCEROL PHENYLBUTYRATE
     Indication: UREA CYCLE ENZYME DEFICIENCY
     Dosage: 4 ML TID
     Route: 048
     Dates: start: 20130305

REACTIONS (5)
  - Helicobacter infection [Unknown]
  - Hypophagia [Unknown]
  - Nasopharyngitis [Unknown]
  - Hyperammonaemia [Recovered/Resolved]
  - Influenza [Unknown]

NARRATIVE: CASE EVENT DATE: 201611
